FAERS Safety Report 7571817-X (Version None)
Quarter: 2011Q2

REPORT INFORMATION
  Report Type: 
  Country: None (occurrence: None)
  Receive Date: 20110624
  Receipt Date: 20110621
  Transmission Date: 20111010
  Serious: Yes (Other)
  Sender: FDA-Public Use
  Company Number: US-PFIZER INC-2011120391

PATIENT
  Sex: Female
  Weight: 60.3 kg

DRUGS (3)
  1. NEURONTIN [Suspect]
     Indication: PAIN
     Dosage: 3 ML, 1X/DAY
     Route: 048
     Dates: start: 20010101, end: 20110501
  2. CITALOPRAM [Concomitant]
     Indication: CHRONIC FATIGUE SYNDROME
     Dosage: UNK
  3. FLEXERIL [Concomitant]
     Indication: SLEEP DISORDER
     Dosage: UNK

REACTIONS (4)
  - EPSTEIN-BARR VIRUS TEST POSITIVE [None]
  - PARVOVIRUS B19 TEST POSITIVE [None]
  - COXSACKIE VIRUS TEST POSITIVE [None]
  - DYSGEUSIA [None]
